FAERS Safety Report 6230800-7 (Version None)
Quarter: 2009Q2

REPORT INFORMATION
  Report Type: 
  Country: None (occurrence: None)
  Receive Date: 20090616
  Receipt Date: 20090609
  Transmission Date: 20091009
  Serious: No
  Sender: FDA-Public Use
  Company Number: KR-JNJFOC-20090602971

PATIENT
  Sex: Female

DRUGS (1)
  1. DURAGESIC-100 [Suspect]
     Indication: INTERVERTEBRAL DISC DISORDER
     Dosage: HALF A PATCH
     Route: 062

REACTIONS (2)
  - CONSTIPATION [None]
  - DRUG PRESCRIBING ERROR [None]
